FAERS Safety Report 4391240-9 (Version None)
Quarter: 2004Q2

REPORT INFORMATION
  Report Type: 
  Country: None (occurrence: None)
  Receive Date: 20040621
  Receipt Date: 20040324
  Transmission Date: 20050107
  Serious: Yes (Other)
  Sender: FDA-Public Use
  Company Number: USA-2002-0002973

PATIENT
  Sex: Male
  Weight: 95.2 kg

DRUGS (14)
  1. OXYCONTIN [Suspect]
     Indication: PAIN
     Dosage: 10 MG, Q12H, ORAL
     Route: 048
     Dates: start: 20000601
  2. OXYCODONE HCL [Suspect]
     Indication: PAIN
     Dosage: 5 MG, DAILY, ORAL
     Route: 048
  3. MEPERGAN FORTIS [Concomitant]
  4. SOMA [Concomitant]
  5. DOXEPIN HCL [Concomitant]
  6. MOBIC [Concomitant]
  7. RESTORIL [Concomitant]
  8. NEURONTIN [Concomitant]
  9. CELEBREX [Concomitant]
  10. VIOXX [Concomitant]
  11. PAXIL [Concomitant]
  12. SKELAXIN [Concomitant]
  13. NAPROSYN [Concomitant]
  14. MONOPRIL [Concomitant]

REACTIONS (18)
  - ABDOMINAL DISCOMFORT [None]
  - DEPRESSION [None]
  - DRUG DEPENDENCE [None]
  - DRUG TOLERANCE INCREASED [None]
  - DRUG WITHDRAWAL SYNDROME [None]
  - DYSAESTHESIA [None]
  - EMOTIONAL DISTRESS [None]
  - HYPERTENSION [None]
  - HYPOAESTHESIA [None]
  - INSOMNIA [None]
  - MUSCLE SPASMS [None]
  - NERVOUSNESS [None]
  - PAIN [None]
  - PARAESTHESIA [None]
  - PRURITUS [None]
  - SCIATICA [None]
  - SOMNOLENCE [None]
  - WEIGHT DECREASED [None]
